FAERS Safety Report 6872947-8 (Version None)
Quarter: 2010Q3

REPORT INFORMATION
  Report Type: 
  Country: None (occurrence: None)
  Receive Date: 20100723
  Receipt Date: 20100719
  Transmission Date: 20110219
  Serious: Yes (Hospitalization)
  Sender: FDA-Public Use
  Company Number: US-MERCK-1007USA02102

PATIENT
  Age: 74 Year
  Sex: Female

DRUGS (8)
  1. JANUVIA [Suspect]
     Indication: DIABETES MELLITUS
     Route: 048
     Dates: start: 20090701, end: 20100101
  2. JANUVIA [Suspect]
     Route: 048
  3. COUMADIN [Concomitant]
     Route: 065
  4. STARLIX [Concomitant]
     Route: 065
  5. METFORMIN [Concomitant]
     Route: 065
     Dates: end: 20100101
  6. VERAPAMIL [Concomitant]
     Route: 065
  7. TRIAM TABLETS [Concomitant]
     Route: 065
  8. LIPITOR [Concomitant]
     Route: 065

REACTIONS (5)
  - ABDOMINAL DISCOMFORT [None]
  - CYSTITIS [None]
  - INCREASED APPETITE [None]
  - KIDNEY INFECTION [None]
  - ULCER [None]
